FAERS Safety Report 5958627-1 (Version None)
Quarter: 2008Q4

REPORT INFORMATION
  Report Type: 
  Country: None (occurrence: None)
  Receive Date: 20081119
  Receipt Date: 20081111
  Transmission Date: 20090506
  Serious: Yes (Death)
  Sender: FDA-Public Use
  Company Number: GB-PFIZER INC-2008084851

PATIENT
  Sex: Male

DRUGS (12)
  1. PREDNISOLONE [Suspect]
     Dates: start: 20060201, end: 20060421
  2. DOXORUBICIN HYDROCHLORIDE [Suspect]
  3. CYCLOPHOSPHAMIDE [Suspect]
     Dates: start: 20060201, end: 20060421
  4. VINCRISTINE [Suspect]
     Dates: start: 20060201, end: 20060421
  5. CYTARABINE [Suspect]
  6. ETOPOSIDE [Suspect]
  7. METHOTREXATE [Suspect]
  8. IBRITUMOMAB TIUXETAN [Suspect]
     Dosage: TEXT:0.4MCI
     Dates: start: 20050407
  9. CARMUSTINE [Suspect]
  10. BEVACIZUMAB [Suspect]
     Dates: start: 20050331
  11. RITUXIMAB [Suspect]
     Dates: start: 20050331
  12. CHLORAMBUCIL [Suspect]
     Indication: NON-HODGKIN'S LYMPHOMA
     Dates: start: 20010901

REACTIONS (2)
  - ACUTE MYELOID LEUKAEMIA [None]
  - NEOPLASM MALIGNANT [None]
